FAERS Safety Report 9840342 (Version 1)
Quarter: 2014Q1

REPORT INFORMATION
  Report Type: Spontaneous
  Country: US (occurrence: US)
  Receive Date: 20140124
  Receipt Date: 20140124
  Transmission Date: 20141002
  Serious: Yes (Disabling, Other)
  Sender: FDA-Public Use
  Company Number: US-ROCHE-1335694

PATIENT
  Age: 59 Year
  Sex: Female
  Weight: 92.16 kg

DRUGS (8)
  1. ZELBORAF [Suspect]
     Indication: MALIGNANT MELANOMA
     Route: 048
     Dates: start: 20131024
  2. DILTIAZEM [Concomitant]
  3. ETODOLAC [Concomitant]
  4. FENTANYL [Concomitant]
  5. NORTRIPTYLINE [Concomitant]
  6. OXYCODONE [Concomitant]
  7. ROBAXIN [Concomitant]
  8. WARFARIN [Concomitant]

REACTIONS (5)
  - Diarrhoea [Not Recovered/Not Resolved]
  - Skin cancer [Recovering/Resolving]
  - Asthenia [Unknown]
  - Dry skin [Unknown]
  - Skin exfoliation [Unknown]
